FAERS Safety Report 10280889 (Version 2)
Quarter: 2014Q1

REPORT INFORMATION
  Report Type: Spontaneous
  Country: US (occurrence: None)
  Receive Date: 20120703
  Receipt Date: 20130107
  Transmission Date: 20141002
  Serious: No
  Sender: FDA-Public Use
  Company Number: PHHY2011US53156

PATIENT
  Age: 32 Year
  Sex: Female

DRUGS (5)
  1. GILENYA (FTY) CAPSULE, 0.5MG [Suspect]
     Indication: RELAPSING-REMITTING MULTIPLE SCLEROSIS
     Route: 048
     Dates: start: 20110614
  2. KLONOPIN (CLONAZEPAM) [Concomitant]
  3. BACLOFEN [Concomitant]
  4. VITAMINS NOS [Concomitant]
  5. MINERALS NOS [Concomitant]

REACTIONS (5)
  - Feeling abnormal [None]
  - Oropharyngeal pain [None]
  - Nasopharyngitis [None]
  - Headache [None]
  - Urinary tract infection [None]
